FAERS Safety Report 19738283 (Version 1)
Quarter: 2021Q3

REPORT INFORMATION
  Report Type: Spontaneous
  Country: US (occurrence: US)
  Receive Date: 20210824
  Receipt Date: 20210824
  Transmission Date: 20211014
  Serious: Yes (Other)
  Sender: FDA-Public Use
  Company Number: US-TORRENT-00011213

PATIENT
  Age: 14 Year
  Sex: Female

DRUGS (5)
  1. FLUOXETINE [Concomitant]
     Active Substance: FLUOXETINE HYDROCHLORIDE
     Indication: ADJUSTMENT DISORDER
     Dosage: UNKNOWN
  2. CYCLOBENZAPRINE. [Concomitant]
     Active Substance: CYCLOBENZAPRINE
     Indication: JUVENILE IDIOPATHIC ARTHRITIS
     Dosage: UNKNOWN
  3. HYDROXYCHOLORQUINE [Concomitant]
     Indication: JUVENILE IDIOPATHIC ARTHRITIS
     Dosage: UNKNOWN
  4. CELECOXIB. [Concomitant]
     Active Substance: CELECOXIB
     Indication: PAIN
     Dosage: UNKNOWN
  5. CARBAMAZEPINE. [Suspect]
     Active Substance: CARBAMAZEPINE
     Indication: CRAMP-FASCICULATION SYNDROME
     Dosage: UNKNOWN

REACTIONS (1)
  - Agranulocytosis [Unknown]
